FAERS Safety Report 26189626 (Version 1)
Quarter: 2025Q4

REPORT INFORMATION
  Report Type: Spontaneous
  Country: EU (occurrence: EU)
  Receive Date: 20251223
  Receipt Date: 20251223
  Transmission Date: 20260118
  Serious: Yes (Hospitalization, Other)
  Sender: AMGEN
  Company Number: EU-ABBVIE-6572742

PATIENT
  Age: 30 Year
  Sex: Female

DRUGS (12)
  1. ADALIMUMAB [Suspect]
     Active Substance: ADALIMUMAB
     Indication: Colitis ulcerative
     Dosage: UNK
     Route: 058
     Dates: start: 20210114
  2. ADALIMUMAB [Suspect]
     Active Substance: ADALIMUMAB
     Dosage: UNK
     Route: 058
     Dates: start: 20230719
  3. INFLIXIMAB [Suspect]
     Active Substance: INFLIXIMAB
     Indication: Rheumatoid arthritis
     Dosage: 5 MILLIGRAM
     Route: 065
     Dates: start: 20191213
  4. INFLIXIMAB [Suspect]
     Active Substance: INFLIXIMAB
     Dosage: 4.24 UG/ML, ANTI 0.0 UG/ML
     Route: 065
     Dates: start: 202006
  5. INFLIXIMAB [Suspect]
     Active Substance: INFLIXIMAB
     Dosage: UNK UNK, Q4WK
     Route: 065
     Dates: start: 202106, end: 2021
  6. INFLIXIMAB [Suspect]
     Active Substance: INFLIXIMAB
     Dosage: 0.0 UG/ML, ANTI 1131.70 UG/ML
     Route: 065
     Dates: start: 20211213
  7. INFLIXIMAB [Suspect]
     Active Substance: INFLIXIMAB
     Dosage: 8.26 UG/ML, ANTI 0 UG/ML
     Route: 065
  8. PREDNISONE [Concomitant]
     Active Substance: PREDNISONE
     Indication: Rheumatoid arthritis
     Dosage: 20 MILLIGRAM, QD
     Route: 065
     Dates: start: 20210311
  9. PREDNISONE [Concomitant]
     Active Substance: PREDNISONE
     Indication: Colitis ulcerative
     Dosage: 40 MILLIGRAM, QD
     Route: 065
     Dates: start: 20230803
  10. PREDNISONE [Concomitant]
     Active Substance: PREDNISONE
     Dosage: 20 MILLIGRAM, QD
     Route: 065
     Dates: start: 20250523, end: 20251104
  11. PREDNISONE [Concomitant]
     Active Substance: PREDNISONE
     Dosage: 40 MILLIGRAM, QD
     Route: 065
  12. USTEKINUMAB [Concomitant]
     Active Substance: USTEKINUMAB
     Indication: Arthralgia
     Dosage: UNK
     Route: 065
     Dates: start: 20231024, end: 20250718

REACTIONS (4)
  - Rheumatoid arthritis [Not Recovered/Not Resolved]
  - Lyme disease [Unknown]
  - Infusion related reaction [Unknown]
  - Weight decreased [Unknown]

NARRATIVE: CASE EVENT DATE: 20210101
